FAERS Safety Report 4664796-6 (Version None)
Quarter: 2005Q2

REPORT INFORMATION
  Report Type: 
  Country: None (occurrence: None)
  Receive Date: 20050517
  Receipt Date: 20050517
  Transmission Date: 20051028
  Serious: No
  Sender: FDA-Public Use
  Company Number: None

PATIENT
  Age: 79 Year
  Sex: Male

DRUGS (2)
  1. DILTIAZEM [Suspect]
     Indication: HYPERTENSION
     Dosage: 180MG DAILY PO  MANY YEARS
     Route: 048
  2. IMIPRAMINE [Suspect]
     Indication: ENURESIS
     Dosage: 25MG BID PO  MANY YEARS
     Route: 048

REACTIONS (9)
  - ARRHYTHMIA [None]
  - ASTHENIA [None]
  - ATRIOVENTRICULAR BLOCK SECOND DEGREE [None]
  - BRADYCARDIA [None]
  - ELECTROCARDIOGRAM ABNORMAL [None]
  - ELECTROCARDIOGRAM PR PROLONGATION [None]
  - ELECTROCARDIOGRAM QRS COMPLEX PROLONGED [None]
  - EXTRASYSTOLES [None]
  - VOMITING [None]
